FAERS Safety Report 20814826 (Version 1)
Quarter: 2022Q2

REPORT INFORMATION
  Report Type: Spontaneous
  Country: US (occurrence: US)
  Receive Date: 20220511
  Receipt Date: 20220511
  Transmission Date: 20220720
  Serious: No
  Sender: FDA-Public Use
  Company Number: US-PFIZER INC-2017016339

PATIENT
  Age: 59 Year
  Sex: Female
  Weight: 63 kg

DRUGS (12)
  1. XELJANZ [Suspect]
     Active Substance: TOFACITINIB CITRATE
     Indication: Alopecia areata
     Dosage: 10 MG, 2X/DAY (2 TABS 2 TIMES A DAY)
     Route: 048
  2. XELJANZ [Suspect]
     Active Substance: TOFACITINIB CITRATE
     Indication: Rheumatoid arthritis
     Dosage: 20 MG, DAILY
  3. XELJANZ [Suspect]
     Active Substance: TOFACITINIB CITRATE
     Indication: Alopecia
     Dosage: 5 MG, 2X/DAY, (ONE IN THE MORNING AND ONE 5MG TABLET IN THE EVENING)
     Route: 048
     Dates: start: 201705, end: 2017
  4. XELJANZ [Suspect]
     Active Substance: TOFACITINIB CITRATE
     Dosage: 5 MG, 2X/DAY (TWO 5MG TABLETS IN THE MORNING AND TWO 5MG TABLETS AT NIGHT)
     Dates: start: 2017
  5. XELJANZ [Suspect]
     Active Substance: TOFACITINIB CITRATE
     Dosage: 10 MG, 2X/DAY
  6. XELJANZ [Suspect]
     Active Substance: TOFACITINIB CITRATE
     Dosage: 10 MG, 1X/DAY (5MG 2 TABLETS IN THE MORNING)
  7. XELJANZ [Suspect]
     Active Substance: TOFACITINIB CITRATE
     Dosage: 5 MG, 1X/DAY (1 TABLET IN THE EVENING)
  8. XELJANZ [Suspect]
     Active Substance: TOFACITINIB CITRATE
     Dosage: 10 MG, 3X/DAY
  9. XELJANZ [Suspect]
     Active Substance: TOFACITINIB CITRATE
     Dosage: 15 MG, DAILY ((XELJANZ 5MG; TWO TABLETS IN THE MORNING, AND ONE TABLET AT NIGHT)
  10. LATUDA [Concomitant]
     Active Substance: LURASIDONE HYDROCHLORIDE
     Indication: Bipolar disorder
     Dosage: 40 MG, 2X/DAY,(ONE THE MORNING AND ONE AT NIGHT)
     Route: 048
     Dates: start: 2017
  11. LORAZEPAM [Concomitant]
     Active Substance: LORAZEPAM
     Indication: Anxiety
     Dosage: UNK (TAKEN PERIODICALLY WHEN HAVING AN ANXIETY ATTACK)
     Dates: start: 201705
  12. LITHIUM [Concomitant]
     Active Substance: LITHIUM
     Indication: Mood altered
     Dosage: UNK, 1X/DAY (TAKE 3 AT NIGHT)

REACTIONS (3)
  - Off label use [Unknown]
  - Product use issue [Unknown]
  - Drug hypersensitivity [Unknown]
